FAERS Safety Report 26061964 (Version 1)
Quarter: 2025Q4

REPORT INFORMATION
  Report Type: Spontaneous
  Country: US (occurrence: US)
  Receive Date: 20251119
  Receipt Date: 20251119
  Transmission Date: 20260118
  Serious: No
  Sender: ALKEM
  Company Number: US-ALKEM LABORATORIES LIMITED-US-ALKEM-2025-09703

PATIENT
  Sex: Female

DRUGS (1)
  1. CHOLESTYRAMINE [Suspect]
     Active Substance: CHOLESTYRAMINE
     Indication: Diarrhoea
     Dosage: UNK
     Route: 065

REACTIONS (1)
  - Vomiting [Unknown]
